FAERS Safety Report 25455610 (Version 1)
Quarter: 2025Q2

REPORT INFORMATION
  Report Type: Spontaneous
  Country: FR (occurrence: FR)
  Receive Date: 20250619
  Receipt Date: 20250619
  Transmission Date: 20250717
  Serious: Yes (Hospitalization)
  Sender: FRESENIUS KABI
  Company Number: None

PATIENT
  Age: 74 Year
  Sex: Male
  Weight: 64 kg

DRUGS (20)
  1. PEMETREXED [Suspect]
     Active Substance: PEMETREXED
     Indication: Bronchial carcinoma
     Route: 042
     Dates: start: 20250416, end: 20250416
  2. RYBREVANT [Suspect]
     Active Substance: AMIVANTAMAB-VMJW
     Indication: Bronchial carcinoma
     Route: 042
     Dates: start: 20250423, end: 20250423
  3. RYBREVANT [Suspect]
     Active Substance: AMIVANTAMAB-VMJW
     Route: 042
     Dates: start: 20250417, end: 20250417
  4. RYBREVANT [Suspect]
     Active Substance: AMIVANTAMAB-VMJW
     Route: 042
     Dates: start: 20250416, end: 20250416
  5. CARBOPLATIN [Suspect]
     Active Substance: CARBOPLATIN
     Indication: Bronchial carcinoma
     Route: 042
     Dates: start: 20250416, end: 20250416
  6. ONDANSETRON [Concomitant]
     Active Substance: ONDANSETRON
     Indication: Prophylaxis of nausea and vomiting
     Route: 042
     Dates: start: 20250416, end: 20250416
  7. APREPITANT [Concomitant]
     Active Substance: APREPITANT
     Indication: Prophylaxis of nausea and vomiting
     Route: 048
     Dates: start: 20250416, end: 20250416
  8. DEXAMETHASONE [Concomitant]
     Active Substance: DEXAMETHASONE
     Indication: Prophylaxis of nausea and vomiting
     Route: 042
     Dates: start: 20250416, end: 20250416
  9. DEXCHLORPHENIRAMINE MALEATE [Concomitant]
     Active Substance: DEXCHLORPHENIRAMINE MALEATE
     Indication: Antiallergic therapy
     Route: 048
     Dates: start: 20250416, end: 20250416
  10. ACETAMINOPHEN [Concomitant]
     Active Substance: ACETAMINOPHEN
     Indication: Pain
     Route: 048
     Dates: start: 20250416, end: 20250416
  11. RISPERDAL 1 mg, scored film-coated tablet [Concomitant]
     Indication: Product used for unknown indication
     Dosage: 1 TABLET PER DAY
     Route: 048
  12. SEROPLEX 10 mg, scored film-coated tablet [Concomitant]
     Indication: Product used for unknown indication
     Dosage: 1 TABLET PER DAY
     Route: 048
  13. FOLIC ACID [Concomitant]
     Active Substance: FOLIC ACID
     Indication: Product used for unknown indication
     Dosage: 1 TABLET PER DAY
     Route: 048
  14. NOVOMIX 30 PENFILL 100 U/ml, suspension for injection in cartridge [Concomitant]
     Indication: Diabetes mellitus
     Dosage: 10 UI AT 8AM ET 20 UI AT NOON
     Route: 058
  15. INSULIN ASPART [Concomitant]
     Active Substance: INSULIN ASPART
     Indication: Diabetes mellitus
     Route: 058
  16. TRIATEC 5 mg, tablet secable [Concomitant]
     Indication: Hypertension
     Dosage: 2 TABLETS AT 08 AM
     Route: 048
  17. CORTANCYL 20 mg, scored tablets [Concomitant]
     Indication: Prophylaxis of nausea and vomiting
     Dosage: 1 TABLET AT 08 AM
     Route: 048
  18. INNOHEP 14 000 U.I. anti-Xa/0.7 ml, solution for injection (S.C.) in p [Concomitant]
     Indication: Product used for unknown indication
     Dosage: 11 000 UI AT 06 PM
     Route: 058
  19. DOXYCYCLINE [Concomitant]
     Active Substance: DOXYCYCLINE
     Indication: Product used for unknown indication
     Dosage: 01 TABLET AT 08AM
     Route: 048
  20. LANSOPRAZOLE [Concomitant]
     Active Substance: LANSOPRAZOLE
     Indication: Product used for unknown indication
     Dosage: 2 TABLETS AT 06 PM
     Route: 048

REACTIONS (4)
  - Thrombocytopenia [Recovered/Resolved]
  - Stomatitis [Recovered/Resolved]
  - Acute kidney injury [Recovered/Resolved]
  - Neutropenia [Recovered/Resolved]

NARRATIVE: CASE EVENT DATE: 20250423
